FAERS Safety Report 25843611 (Version 4)
Quarter: 2025Q4

REPORT INFORMATION
  Report Type: Report from Study
  Country: GB (occurrence: GB)
  Receive Date: 20250924
  Receipt Date: 20251102
  Transmission Date: 20260117
  Serious: Yes (Hospitalization)
  Sender: JOHNSON AND JOHNSON
  Company Number: GB-BAYER-2025A126823

PATIENT
  Sex: Female

DRUGS (1)
  1. VENTAVIS [Suspect]
     Active Substance: ILOPROST
     Indication: Pulmonary hypertension
     Dosage: UNK
     Route: 055
     Dates: start: 20250912

REACTIONS (6)
  - Hospitalisation [Not Recovered/Not Resolved]
  - Drug ineffective [Not Recovered/Not Resolved]
  - Dyspnoea [Unknown]
  - Malaise [Unknown]
  - Drug dose omission by device [Unknown]
  - Device operational issue [Unknown]

NARRATIVE: CASE EVENT DATE: 20250101
